FAERS Safety Report 12376241 (Version 1)
Quarter: 2016Q2

REPORT INFORMATION
  Report Type: Report from Study
  Country: TW (occurrence: TW)
  Receive Date: 20160517
  Receipt Date: 20160517
  Transmission Date: 20160815
  Serious: Yes (Hospitalization, Other)
  Sender: FDA-Public Use
  Company Number: PHHY2016TW036994

PATIENT
  Age: 74 Year
  Sex: Male
  Weight: 50 kg

DRUGS (1)
  1. EXJADE [Suspect]
     Active Substance: DEFERASIROX
     Indication: MYELODYSPLASTIC SYNDROME
     Dosage: 1000 MG, UNK
     Route: 048
     Dates: start: 20160224

REACTIONS (8)
  - Nasopharyngitis [Recovered/Resolved]
  - Haematochezia [Recovered/Resolved]
  - Duodenal ulcer [Recovering/Resolving]
  - Asthenia [Not Recovered/Not Resolved]
  - Abdominal tenderness [Unknown]
  - Platelet count decreased [Unknown]
  - Gastritis erosive [Unknown]
  - Abdominal pain upper [Not Recovered/Not Resolved]

NARRATIVE: CASE EVENT DATE: 20160315
